FAERS Safety Report 19000269 (Version 3)
Quarter: 2021Q2

REPORT INFORMATION
  Report Type: Other
  Country: GB (occurrence: GB)
  Receive Date: 20210312
  Receipt Date: 20210426
  Transmission Date: 20210717
  Serious: Yes (Other)
  Sender: FDA-Public Use
  Company Number: GB-ROCHE-2577769

PATIENT
  Age: 53 Year
  Sex: Female

DRUGS (16)
  1. ACICLOVIR [Concomitant]
     Active Substance: ACYCLOVIR
  2. ROACTEMRA [Suspect]
     Active Substance: TOCILIZUMAB
     Indication: RHEUMATOID ARTHRITIS
     Route: 058
     Dates: start: 20190705
  3. DOXEPIN [Concomitant]
     Active Substance: DOXEPIN
  4. VENLAFAXINE [Concomitant]
     Active Substance: VENLAFAXINE HYDROCHLORIDE
     Dosage: MODIFIED?RELEASE
  5. EVOREL CONTI [Concomitant]
     Active Substance: ESTRADIOL\NORETHINDRONE ACETATE
  6. FERROUS SULFATE. [Concomitant]
     Active Substance: FERROUS SULFATE
  7. SENNA [Concomitant]
     Active Substance: SENNA LEAF\SENNOSIDES\SENNOSIDES A AND B
     Dosage: 1 OR 2 TO BE TAKEN AT NIGHT
  8. ALVERINE [Concomitant]
     Active Substance: ALVERINE
  9. COVID?19 VACCINE MRNA [Concomitant]
     Dosage: 3OMICROGRAMS/0.3M1 DOSE CONCENTRATE
     Route: 030
  10. OMEPRAZOLE. [Concomitant]
     Active Substance: OMEPRAZOLE
  11. ERGOCALCIFEROL. [Concomitant]
     Active Substance: ERGOCALCIFEROL
  12. SUMATRIPTAN. [Concomitant]
     Active Substance: SUMATRIPTAN
     Dosage: TAKE ONE TABLET FOR MIGRAINE ATTACK. IF SYMPTOMS COME BACK, TAKE ONE TABLET AT LEAST TWO HOURS AFTER
  13. LACTULOSE. [Concomitant]
     Active Substance: LACTULOSE
     Dosage: 3.1?3.7 G/5 MI?UP TO THREE 5 MI SPOON FULLS TO BE TAKEN TWICE A DAY
  14. INDAPAMIDE. [Concomitant]
     Active Substance: INDAPAMIDE
  15. MEBEVERINE [Concomitant]
     Active Substance: MEBEVERINE
     Dosage: TNL
  16. RAMIPRIL. [Concomitant]
     Active Substance: RAMIPRIL

REACTIONS (6)
  - Herpes zoster [Unknown]
  - Bacterial infection [Unknown]
  - Folliculitis [Recovered/Resolved]
  - Folliculitis [Unknown]
  - Blister [Unknown]
  - Herpes zoster [Recovered/Resolved]

NARRATIVE: CASE EVENT DATE: 20200118
